FAERS Safety Report 15167894 (Version 2)
Quarter: 2018Q3

REPORT INFORMATION
  Report Type: Spontaneous
  Country: DE (occurrence: DE)
  Receive Date: 20180719
  Receipt Date: 20180807
  Transmission Date: 20181010
  Serious: Yes (Hospitalization)
  Sender: FDA-Public Use
  Company Number: DE-MYLANLABS-2018M1052254

PATIENT
  Age: 84 Year
  Sex: Female

DRUGS (4)
  1. PANTOPRAZOL                        /01263201/ [Concomitant]
     Active Substance: PANTOPRAZOLE
     Indication: PRODUCT USED FOR UNKNOWN INDICATION
     Dosage: 40 MG, 1?0?0?0
  2. RISPERIDONE. [Suspect]
     Active Substance: RISPERIDONE
     Indication: PRODUCT USED FOR UNKNOWN INDICATION
     Dosage: 0.5 MG, 0?0?0?1
  3. DORZOLAMID 1A PHARMA [Concomitant]
     Indication: PRODUCT USED FOR UNKNOWN INDICATION
     Dosage: 20 MG, 1?0?1?0
  4. ENOXAPARIN [Concomitant]
     Active Substance: ENOXAPARIN
     Indication: PRODUCT USED FOR UNKNOWN INDICATION
     Dosage: 0.4 MG, 1?0?0?0

REACTIONS (3)
  - Syncope [Unknown]
  - Contraindicated product administered [Unknown]
  - Hypotension [Unknown]
